FAERS Safety Report 23657678 (Version 1)
Quarter: 2024Q1

REPORT INFORMATION
  Report Type: Spontaneous
  Country: CN (occurrence: CN)
  Receive Date: 20240321
  Receipt Date: 20240321
  Transmission Date: 20240410
  Serious: Yes (Other)
  Sender: FDA-Public Use
  Company Number: CN-BAYER-2024A042353

PATIENT
  Age: 68 Year
  Sex: Female
  Weight: 65 kg

DRUGS (2)
  1. ULTRAVIST [Suspect]
     Active Substance: IOPROMIDE
     Indication: Angiogram
     Dosage: 100 ML, ONCE
     Route: 042
     Dates: start: 20240309, end: 20240309
  2. ULTRAVIST [Suspect]
     Active Substance: IOPROMIDE
     Indication: Chest pain

REACTIONS (2)
  - Rash pruritic [Recovering/Resolving]
  - Tinea infection [Recovering/Resolving]

NARRATIVE: CASE EVENT DATE: 20240309
